FAERS Safety Report 4628807-6 (Version None)
Quarter: 2005Q2

REPORT INFORMATION
  Report Type: 
  Country: None (occurrence: None)
  Receive Date: 20050406
  Receipt Date: 20050323
  Transmission Date: 20051028
  Serious: Yes (Other)
  Sender: FDA-Public Use
  Company Number: DSA_26196_2005

PATIENT
  Age: 68 Year
  Sex: Female
  Weight: 52.6173 kg

DRUGS (5)
  1. DILTIAZEM [Suspect]
     Dosage: DF ONCE
     Dates: start: 20050201, end: 20050201
  2. GABAPENTIN [Suspect]
     Indication: HERPES ZOSTER
     Dosage: 300 MG TID
     Dates: start: 20041001, end: 20050201
  3. OTHER UNSPECIFIED MEDICATIONS [Suspect]
     Dosage: DF
  4. AMITRIPTYLINE HCL TAB [Concomitant]
  5. OTHER UNSPECIFIED THERAPEUTIC PRODUCTS [Concomitant]

REACTIONS (7)
  - DIZZINESS [None]
  - FEELING JITTERY [None]
  - HEART RATE INCREASED [None]
  - HYPERHIDROSIS [None]
  - INSOMNIA [None]
  - RESTLESSNESS [None]
  - VISION BLURRED [None]
